FAERS Safety Report 10247172 (Version 1)
Quarter: 2014Q2

REPORT INFORMATION
  Report Type: Spontaneous
  Country: US (occurrence: None)
  Receive Date: 20140617
  Receipt Date: 20140617
  Transmission Date: 20141212
  Serious: Yes (Death)
  Sender: FDA-Public Use
  Company Number: QSC-2014-0359

PATIENT
  Age: 62 Year
  Sex: Male

DRUGS (1)
  1. H.P. ACTHAR [Suspect]
     Indication: PROTEINURIA
     Dosage: 80 UNITS, SINGLE, INTRAMUSCULAR
     Route: 030
     Dates: start: 201308, end: 201308

REACTIONS (1)
  - Death [None]
